FAERS Safety Report 4996891-6 (Version None)
Quarter: 2006Q2

REPORT INFORMATION
  Report Type: 
  Country: None (occurrence: None)
  Receive Date: 20060509
  Receipt Date: 20060421
  Transmission Date: 20061013
  Serious: Yes (Hospitalization)
  Sender: FDA-Public Use
  Company Number: US-GLAXOSMITHKLINE-A0603436A

PATIENT
  Age: 55 Year
  Sex: Female
  Weight: 171 kg

DRUGS (5)
  1. AVANDIA [Suspect]
     Indication: DIABETES MELLITUS NON-INSULIN-DEPENDENT
     Dosage: 4MG PER DAY
     Route: 048
     Dates: start: 20060318
  2. HYDROCHLOROTHIAZIDE [Concomitant]
     Indication: HYPERTENSION
     Dosage: 12.5MG PER DAY
     Route: 048
  3. LISINOPRIL [Concomitant]
     Indication: HYPERTENSION
     Dosage: 40MG PER DAY
     Route: 048
  4. FRUSEMIDE [Concomitant]
     Indication: HYPERTENSION
     Dosage: 20MG AS REQUIRED
     Route: 048
  5. HUMULIN 70/30 [Concomitant]
     Indication: DIABETES MELLITUS
     Route: 058

REACTIONS (1)
  - NON-CARDIAC CHEST PAIN [None]
